FAERS Safety Report 18822215 (Version 6)
Quarter: 2021Q3

REPORT INFORMATION
  Report Type: Other
  Country: US (occurrence: US)
  Receive Date: 20210202
  Receipt Date: 20210802
  Transmission Date: 20211014
  Serious: No
  Sender: FDA-Public Use
  Company Number: US-ROCHE-2759851

PATIENT
  Age: 47 Year
  Sex: Female
  Weight: 53.57 kg

DRUGS (18)
  1. OCREVUS [Suspect]
     Active Substance: OCRELIZUMAB
     Indication: RELAPSING MULTIPLE SCLEROSIS
     Dosage: DATE OF TREATMENT: 20/JUL/2020?300 MG VIAL
     Route: 042
     Dates: start: 201710
  2. ROBAXIN [Concomitant]
     Active Substance: METHOCARBAMOL
     Indication: BLADDER DISORDER
     Dosage: TAKE 1 TABLET EVERY 8 HOURS AS NEEDED
     Route: 048
  3. OCREVUS [Suspect]
     Active Substance: OCRELIZUMAB
     Indication: MULTIPLE SCLEROSIS
     Route: 042
     Dates: start: 201610
  4. ADDERALL [Concomitant]
     Active Substance: AMPHETAMINE ASPARTATE\AMPHETAMINE SULFATE\DEXTROAMPHETAMINE SACCHARATE\DEXTROAMPHETAMINE SULFATE
     Dosage: 2 IN THE AM, AND 1 TABLET AT LUNCH
     Route: 048
  5. BETHANECHOL [Concomitant]
     Active Substance: BETHANECHOL
     Indication: URINARY RETENTION
     Route: 048
     Dates: start: 2020
  6. URECHOLINE [Concomitant]
     Active Substance: BETHANECHOL CHLORIDE
     Indication: URINARY RETENTION
     Route: 048
  7. VITAMIN C [Concomitant]
     Active Substance: ASCORBIC ACID
     Dosage: TAKE 2 TABLETS DAILY
     Route: 048
  8. ADDERALL [Concomitant]
     Active Substance: AMPHETAMINE ASPARTATE\AMPHETAMINE SULFATE\DEXTROAMPHETAMINE SACCHARATE\DEXTROAMPHETAMINE SULFATE
     Indication: COGNITIVE DISORDER
     Dosage: AS NEEDED IN THE AFTERNOON
     Route: 048
     Dates: start: 2016
  9. CHOLECALCIFEROL [Concomitant]
     Active Substance: CHOLECALCIFEROL
     Indication: VITAMIN D DEFICIENCY
     Route: 048
  10. MELATONIN [Concomitant]
     Active Substance: MELATONIN
     Indication: INSOMNIA
     Dosage: TAKE 2 TABLETS AT BEDTIME
     Route: 048
  11. METHOCARBAMOL. [Concomitant]
     Active Substance: METHOCARBAMOL
     Indication: MUSCLE TIGHTNESS
     Route: 048
     Dates: start: 2016
  12. GABAPENTIN. [Concomitant]
     Active Substance: GABAPENTIN
     Dosage: TAKE 2 TABLETS 3 TIMES PER DAY
     Route: 048
  13. ADDERALL [Concomitant]
     Active Substance: AMPHETAMINE ASPARTATE\AMPHETAMINE SULFATE\DEXTROAMPHETAMINE SACCHARATE\DEXTROAMPHETAMINE SULFATE
     Indication: FATIGUE
     Dosage: AS NEEDED IN THE MORNING
     Route: 048
     Dates: start: 2016
  14. AMPYRA [Concomitant]
     Active Substance: DALFAMPRIDINE
     Route: 048
  15. GABAPENTIN. [Concomitant]
     Active Substance: GABAPENTIN
     Indication: NEUROPATHY PERIPHERAL
     Route: 048
     Dates: start: 2016
  16. MELATONIN [Concomitant]
     Active Substance: MELATONIN
     Indication: SLEEP DISORDER
     Route: 048
     Dates: start: 2016
  17. LEXAPRO [Concomitant]
     Active Substance: ESCITALOPRAM OXALATE
  18. COVID?19 VACCINE [Concomitant]
     Dosage: FOR 2 DOSES ? 2ND DOSE NOT RECEIVED YET
     Route: 058
     Dates: start: 20210714

REACTIONS (4)
  - Fatigue [Unknown]
  - COVID-19 [Recovered/Resolved]
  - Cognitive disorder [Recovering/Resolving]
  - Vitamin B12 deficiency [Recovering/Resolving]

NARRATIVE: CASE EVENT DATE: 2020
